FAERS Safety Report 24063603 (Version 1)
Quarter: 2024Q3

REPORT INFORMATION
  Report Type: Spontaneous
  Country: GB (occurrence: None)
  Receive Date: 20240709
  Receipt Date: 20240709
  Transmission Date: 20241017
  Serious: Yes (Disabling, Other)
  Sender: ASTRAZENECA
  Company Number: 2024A154015

PATIENT
  Age: 79 Year
  Sex: Male
  Weight: 95 kg

DRUGS (1)
  1. DAPAGLIFLOZIN [Suspect]
     Active Substance: DAPAGLIFLOZIN
     Indication: Adverse drug reaction
     Dosage: 10MG ONE DAILY
     Route: 048
     Dates: end: 20240505

REACTIONS (1)
  - Decreased appetite [Not Recovered/Not Resolved]

NARRATIVE: CASE EVENT DATE: 20240418
